FAERS Safety Report 5264662-1 (Version None)
Quarter: 2007Q1

REPORT INFORMATION
  Report Type: 
  Country: None (occurrence: None)
  Receive Date: 20070314
  Receipt Date: 20070302
  Transmission Date: 20070707
  Serious: Yes (Death, Hospitalization)
  Sender: FDA-Public Use
  Company Number: US-JNJFOC-20070301239

PATIENT
  Age: 88 Year
  Sex: Female
  Weight: 45.36 kg

DRUGS (1)
  1. RISPERDAL [Suspect]
     Indication: AGITATION
     Route: 048

REACTIONS (1)
  - DEATH [None]
